FAERS Safety Report 6052947-0 (Version None)
Quarter: 2009Q1

REPORT INFORMATION
  Report Type: 
  Country: None (occurrence: None)
  Receive Date: 20090122
  Receipt Date: 20090115
  Transmission Date: 20090719
  Serious: Yes (Disabling)
  Sender: FDA-Public Use
  Company Number: 1000003546

PATIENT
  Sex: Male
  Weight: 8.6183 kg

DRUGS (1)
  1. LEXAPRO [Suspect]
     Dosage: 5 MG (5 MG, 1 IN 1 D) ,TRANSPLACENTAL
     Route: 064
     Dates: start: 20070115, end: 20070216

REACTIONS (6)
  - DEVELOPMENTAL DELAY [None]
  - FEEDING DISORDER NEONATAL [None]
  - HIP DYSPLASIA [None]
  - MATERNAL DRUGS AFFECTING FOETUS [None]
  - NEURODEVELOPMENTAL DISORDER [None]
  - POOR WEIGHT GAIN NEONATAL [None]
